FAERS Safety Report 4530320-1 (Version None)
Quarter: 2004Q4

REPORT INFORMATION
  Report Type: 
  Country: None (occurrence: None)
  Receive Date: 20041217
  Receipt Date: 20041209
  Transmission Date: 20050328
  Serious: Yes (Life-Threatening)
  Sender: FDA-Public Use
  Company Number: JP-ROCHE-388584

PATIENT
  Age: 80 Year
  Sex: Male

DRUGS (25)
  1. BLINDED TICLOPIDINE [Suspect]
     Indication: ACUTE CORONARY SYNDROME
     Route: 048
     Dates: start: 20041113, end: 20041113
  2. BLINDED TICLOPIDINE [Suspect]
     Route: 048
     Dates: start: 20041114, end: 20041120
  3. ARTIST [Suspect]
     Indication: BRADYCARDIA
     Route: 048
     Dates: start: 20041114, end: 20041123
  4. ASPIRIN [Concomitant]
     Indication: ACUTE CORONARY SYNDROME
     Route: 048
     Dates: end: 20041113
  5. POLYFUL [Concomitant]
     Indication: HYPERTENSION
     Route: 048
     Dates: end: 20041113
  6. LISINOPRIL [Concomitant]
     Indication: HYPERTENSION
     Route: 048
     Dates: end: 20041113
  7. RANITIDINE [Concomitant]
     Route: 048
  8. BUFFERIN [Concomitant]
     Indication: ACUTE CORONARY SYNDROME
     Dosage: INTERRUPTED ON 19 NOV 2004.
     Route: 048
     Dates: start: 20041114
  9. HEPARIN SODIUM [Concomitant]
     Indication: ACUTE CORONARY SYNDROME
     Dosage: THE 3000 IU WAS ADMINISTERED TWICE, ON DAY 1 AND DAY 3, WHILE THE 5000 IU WAS ADMINISTERED ONCE ON +
     Route: 022
     Dates: start: 20041113, end: 20041120
  10. NITROL [Concomitant]
     Indication: ACUTE CORONARY SYNDROME
     Route: 022
     Dates: start: 20041113, end: 20041120
  11. CARBOCAIN [Concomitant]
     Indication: LOCAL ANAESTHESIA
     Dosage: ON BOTH DAYS.
     Route: 030
     Dates: start: 20041113, end: 20041120
  12. OMNIPAQUE 140 [Concomitant]
     Indication: ARTERIOGRAM CORONARY
     Dosage: 180 ML ON 13/11/04 AND 65 ML ON 20/11/04.
     Route: 022
     Dates: start: 20041113, end: 20041120
  13. HEPARIN [Concomitant]
     Indication: ACUTE CORONARY SYNDROME
     Dosage: FIRST DOSE STOPPED ON 15/11/04 AND THE SECOND DOSE WAS TAKEN JUST ON 20/11/04.
     Route: 041
     Dates: start: 20041113, end: 20041120
  14. KEFRAL [Concomitant]
     Indication: INFECTION PROPHYLAXIS
     Route: 048
     Dates: start: 20041113, end: 20041122
  15. LIDOCAINE [Concomitant]
     Indication: ARRHYTHMIA
     Route: 041
     Dates: start: 20041113, end: 20041115
  16. CERCINE [Concomitant]
     Route: 048
     Dates: start: 20041113, end: 20041113
  17. LIDOCAINE [Concomitant]
     Dosage: LIDOQUICK.
     Route: 042
     Dates: start: 20041113, end: 20041113
  18. NOVO-HEPARIN [Concomitant]
     Indication: ACUTE CORONARY SYNDROME
     Route: 041
     Dates: start: 20041113, end: 20041115
  19. ZANTAC [Concomitant]
     Indication: GASTRIC ULCER
     Route: 048
     Dates: start: 20041113
  20. LASIX [Concomitant]
     Route: 042
     Dates: start: 20041114, end: 20041114
  21. LIPITOR [Concomitant]
     Route: 048
     Dates: start: 20041114
  22. LAC-B [Concomitant]
     Indication: DIARRHOEA
     Route: 048
     Dates: start: 20041116, end: 20041118
  23. PANALDINE [Concomitant]
     Indication: ACUTE CORONARY SYNDROME
     Dosage: INTERRUPTED ON 20/11/04.
     Route: 048
     Dates: start: 20041120, end: 20041124
  24. PLETAL [Concomitant]
     Indication: ACUTE CORONARY SYNDROME
     Route: 048
     Dates: start: 20041125
  25. CELTECT [Concomitant]
     Route: 048
     Dates: start: 20041124

REACTIONS (2)
  - BRADYCARDIA [None]
  - DIARRHOEA [None]
